FAERS Safety Report 23851343 (Version 1)
Quarter: 2024Q2

REPORT INFORMATION
  Report Type: Spontaneous
  Country: FR (occurrence: FR)
  Receive Date: 20240514
  Receipt Date: 20240514
  Transmission Date: 20240716
  Serious: Yes (Other)
  Sender: FDA-Public Use
  Company Number: None

PATIENT
  Age: 72 Year
  Sex: Female

DRUGS (1)
  1. VABYSMO [Suspect]
     Active Substance: FARICIMAB\FARICIMAB-SVOA
     Indication: Age-related macular degeneration
     Dosage: 120 MG/ML
     Route: 065
     Dates: start: 20231206, end: 20240313

REACTIONS (3)
  - Ocular hypertension [Not Recovered/Not Resolved]
  - Vitritis [Not Recovered/Not Resolved]
  - Anterior chamber inflammation [Not Recovered/Not Resolved]

NARRATIVE: CASE EVENT DATE: 20240313
